FAERS Safety Report 25003674 (Version 2)
Quarter: 2025Q1

REPORT INFORMATION
  Report Type: Spontaneous
  Country: US (occurrence: US)
  Receive Date: 20250224
  Receipt Date: 20250307
  Transmission Date: 20250408
  Serious: Yes (Death, Hospitalization)
  Sender: TEVA
  Company Number: US-TEVA-VS-3300338

PATIENT
  Age: 70 Year
  Sex: Male

DRUGS (1)
  1. LAMOTRIGINE [Suspect]
     Active Substance: LAMOTRIGINE
     Indication: Product used for unknown indication
     Route: 065

REACTIONS (9)
  - Haemophagocytic lymphohistiocytosis [Fatal]
  - Shock haemorrhagic [Unknown]
  - Cardiac arrest [Fatal]
  - Encephalitis [Unknown]
  - Retroperitoneal haemorrhage [Unknown]
  - Subdural haematoma [Unknown]
  - Hepatic failure [Unknown]
  - Stress cardiomyopathy [Unknown]
  - Renal failure [Unknown]
